FAERS Safety Report 6437607-6 (Version None)
Quarter: 2009Q4

REPORT INFORMATION
  Report Type: 
  Country: None (occurrence: None)
  Receive Date: 20091109
  Receipt Date: 20091029
  Transmission Date: 20100525
  Serious: Yes (Hospitalization, Other)
  Sender: FDA-Public Use
  Company Number: JHP200900345

PATIENT
  Sex: Female

DRUGS (5)
  1. DANTRIUM [Suspect]
     Dosage: 100 MG, SINGLE, ORAL; 100 MG, BID, ORAL
     Route: 048
     Dates: start: 20091027, end: 20091027
  2. DANTRIUM [Suspect]
     Dosage: 100 MG, SINGLE, ORAL; 100 MG, BID, ORAL
     Route: 048
     Dates: start: 20091028, end: 20091028
  3. DANTRIUM [Suspect]
     Dosage: 100 MG, SINGLE, ORAL; 100 MG, BID, ORAL
     Route: 048
     Dates: start: 20091029, end: 20091029
  4. NICARDIPINE HCL [Concomitant]
  5. SPASFON (PHLOROGLUCINOL, TRIMETHYLPHLOROGLUCINOL) [Concomitant]

REACTIONS (5)
  - DEPRESSED LEVEL OF CONSCIOUSNESS [None]
  - DRUG DISPENSING ERROR [None]
  - DRUG EXPOSURE DURING PREGNANCY [None]
  - HYPOTONIA [None]
  - NAUSEA [None]
